FAERS Safety Report 7755005-X (Version None)
Quarter: 2011Q3

REPORT INFORMATION
  Report Type: 
  Country: None (occurrence: None)
  Receive Date: 20110916
  Receipt Date: 20110908
  Transmission Date: 20111222
  Serious: Yes (Hospitalization)
  Sender: FDA-Public Use
  Company Number: US-BIOGENIDEC-2011BI034538

PATIENT
  Age: 20 Year
  Sex: Male

DRUGS (3)
  1. AVONEX [Suspect]
     Indication: MULTIPLE SCLEROSIS
     Route: 030
     Dates: start: 20110807
  2. SHOT IN STOMACH (NOS) [Concomitant]
     Indication: THROMBOSIS PROPHYLAXIS
     Dates: start: 20110901
  3. PROTONIX [Concomitant]
     Indication: PROPHYLAXIS
     Dates: start: 20110901

REACTIONS (1)
  - MULTIPLE SCLEROSIS RELAPSE [None]
